FAERS Safety Report 6907089-6 (Version None)
Quarter: 2010Q3

REPORT INFORMATION
  Report Type: 
  Country: None (occurrence: None)
  Receive Date: 20100804
  Receipt Date: 20100726
  Transmission Date: 20110219
  Serious: Yes (Other)
  Sender: FDA-Public Use
  Company Number: US-ABBOTT-10P-163-0656848-00

PATIENT
  Age: 55 Year
  Sex: Female
  Weight: 74.91 kg

DRUGS (7)
  1. DEPAKOTE [Suspect]
     Indication: DEPRESSION
     Route: 048
     Dates: start: 20100101, end: 20100504
  2. DEPAKOTE [Suspect]
     Route: 048
     Dates: start: 20100405
  3. DEPAKOTE [Suspect]
     Dosage: AT BEDTIME
  4. ZIPRASIDONE HCL [Suspect]
     Indication: DEPRESSION
     Route: 048
     Dates: start: 20100101, end: 20100101
  5. ZIPRASIDONE HCL [Suspect]
     Dates: start: 20100101, end: 20100101
  6. RISPERDAL [Suspect]
     Indication: DEPRESSION
     Route: 048
     Dates: start: 20100518
  7. RISPERDAL [Suspect]
     Route: 048
     Dates: start: 20100101, end: 20100101

REACTIONS (7)
  - ACTIVITIES OF DAILY LIVING IMPAIRED [None]
  - DELIRIUM [None]
  - DYSARTHRIA [None]
  - FEELING ABNORMAL [None]
  - IMPAIRED DRIVING ABILITY [None]
  - MALAISE [None]
  - NAUSEA [None]
